FAERS Safety Report 5496213-0 (Version None)
Quarter: 2007Q4

REPORT INFORMATION
  Report Type: 
  Country: None (occurrence: None)
  Receive Date: 20071025
  Receipt Date: 20070307
  Transmission Date: 20080405
  Serious: No
  Sender: FDA-Public Use
  Company Number: A0642912A

PATIENT
  Age: 58 Year
  Sex: Female

DRUGS (1)
  1. ADVAIR DISKUS 100/50 [Suspect]
     Indication: CHRONIC OBSTRUCTIVE PULMONARY DISEASE
     Route: 055
     Dates: start: 20061001

REACTIONS (5)
  - EPISTAXIS [None]
  - NASAL DISCOMFORT [None]
  - NASAL MUCOSAL DISORDER [None]
  - NASAL OEDEMA [None]
  - RHINALGIA [None]
